FAERS Safety Report 10010672 (Version 1)
Quarter: 2014Q1

REPORT INFORMATION
  Report Type: Report from Study
  Country: US (occurrence: None)
  Receive Date: 20140311
  Receipt Date: 20140311
  Transmission Date: 20141002
  Serious: Yes (Death)
  Sender: FDA-Public Use
  Company Number: 1403-0465

PATIENT
  Age: 83 Year
  Sex: 0

DRUGS (1)
  1. EYLEA [Suspect]
     Dosage: INTRAVITREAL
     Route: 031
     Dates: start: 20121017, end: 20130125

REACTIONS (1)
  - Death [None]
